FAERS Safety Report 14564101 (Version 2)
Quarter: 2018Q1

REPORT INFORMATION
  Report Type: Spontaneous
  Country: JP (occurrence: JP)
  Receive Date: 20180222
  Receipt Date: 20180227
  Transmission Date: 20180509
  Serious: Yes (Hospitalization, Other)
  Sender: FDA-Public Use
  Company Number: JP-PFIZER INC-2018071017

PATIENT
  Age: 78 Year
  Sex: Male

DRUGS (1)
  1. PREGABALIN. [Suspect]
     Active Substance: PREGABALIN
     Indication: TRIGEMINAL NEURALGIA
     Dosage: 50 MG, DAILY
     Route: 048

REACTIONS (3)
  - Brain natriuretic peptide increased [Not Recovered/Not Resolved]
  - Cardiac failure [Unknown]
  - Condition aggravated [Unknown]
